FAERS Safety Report 25395600 (Version 1)
Quarter: 2025Q2

REPORT INFORMATION
  Report Type: Spontaneous
  Country: CA (occurrence: CA)
  Receive Date: 20250604
  Receipt Date: 20250604
  Transmission Date: 20250717
  Serious: Yes (Other)
  Sender: INCYTE
  Company Number: CA-EVENT-002224

PATIENT
  Age: 12 Year

DRUGS (1)
  1. PEMAZYRE [Suspect]
     Active Substance: PEMIGATINIB
     Indication: Glioneuronal tumour

REACTIONS (7)
  - Glioneuronal tumour [Unknown]
  - Rash pruritic [Not Recovered/Not Resolved]
  - Disease progression [Unknown]
  - Off label use [Unknown]
  - Nail discolouration [Not Recovered/Not Resolved]
  - Onychoclasis [Not Recovered/Not Resolved]
  - Onycholysis [Not Recovered/Not Resolved]
